FAERS Safety Report 9799942 (Version 1)
Quarter: 2014Q1

REPORT INFORMATION
  Report Type: Report from Study
  Country: DE (occurrence: DE)
  Receive Date: 20140106
  Receipt Date: 20140106
  Transmission Date: 20141002
  Serious: Yes (Hospitalization)
  Sender: FDA-Public Use
  Company Number: DE-EISAI INC-E7389-04595-CLI-DE

PATIENT
  Age: 39 Year
  Sex: Female
  Weight: 63 kg

DRUGS (6)
  1. HALAVEN [Suspect]
     Indication: BREAST CANCER METASTATIC
     Route: 041
     Dates: start: 20131031
  2. LAPATINIB [Suspect]
     Indication: BREAST CANCER METASTATIC
     Route: 048
     Dates: start: 20131031
  3. IBUPROFEN [Concomitant]
     Dates: start: 20131023
  4. PANTOZOL [Concomitant]
     Dates: start: 20131023
  5. FENTANYL [Concomitant]
     Dates: start: 20131024
  6. OXYGESIC [Concomitant]
     Dates: start: 20131215

REACTIONS (2)
  - Influenza like illness [Recovered/Resolved]
  - Neutropenia [Recovered/Resolved]
